FAERS Safety Report 24286770 (Version 1)
Quarter: 2024Q3

REPORT INFORMATION
  Report Type: Spontaneous
  Country: US (occurrence: None)
  Receive Date: 20240903
  Receipt Date: 20240903
  Transmission Date: 20241017
  Serious: No
  Sender: Public
  Company Number: None

PATIENT
  Age: 92 Year
  Sex: Male

DRUGS (1)
  1. LENALIDOMIDE [Suspect]
     Active Substance: LENALIDOMIDE
     Indication: Diffuse large B-cell lymphoma
     Dosage: FREQUENCY : DAILY;?
     Route: 048
     Dates: start: 20240805, end: 20240826

REACTIONS (4)
  - Headache [None]
  - Musculoskeletal stiffness [None]
  - Movement disorder [None]
  - Therapeutic product effect incomplete [None]

NARRATIVE: CASE EVENT DATE: 20240826
